FAERS Safety Report 13999463 (Version 2)
Quarter: 2017Q4

REPORT INFORMATION
  Report Type: Spontaneous
  Country: US (occurrence: US)
  Receive Date: 20170922
  Receipt Date: 20171002
  Transmission Date: 20180321
  Serious: Yes (Death, Hospitalization)
  Sender: FDA-Public Use
  Company Number: US-BAUSCH-BL-2017-027544

PATIENT
  Age: 74 Year
  Sex: Male

DRUGS (3)
  1. XIFAXAN [Suspect]
     Active Substance: RIFAXIMIN
     Indication: DIARRHOEA
     Route: 048
  2. XIFAXAN [Suspect]
     Active Substance: RIFAXIMIN
     Dosage: COUPLE OF TIMES OF THE PATEINT TOOK ONE TABLET A DAY.
     Route: 048
  3. LACTULOSE. [Concomitant]
     Active Substance: LACTULOSE
     Indication: AMMONIA INCREASED

REACTIONS (8)
  - Off label use [Unknown]
  - Weight decreased [Unknown]
  - Death [Fatal]
  - Fall [Unknown]
  - Rib fracture [Unknown]
  - Product size issue [Unknown]
  - Fractured coccyx [Unknown]
  - Product use complaint [Unknown]

NARRATIVE: CASE EVENT DATE: 20170907
